FAERS Safety Report 5373534-3 (Version None)
Quarter: 2007Q2

REPORT INFORMATION
  Report Type: 
  Country: None (occurrence: None)
  Receive Date: 20070628
  Receipt Date: 20070628
  Transmission Date: 20071010
  Serious: Yes (Hospitalization)
  Sender: FDA-Public Use
  Company Number: B0470444A

PATIENT
  Age: 33 Month
  Sex: Male

DRUGS (2)
  1. ZINNAT INJECTABLE [Suspect]
     Dosage: 750MG TWICE PER DAY
     Route: 030
     Dates: start: 20070506
  2. EMLA [Concomitant]

REACTIONS (4)
  - AGITATION [None]
  - DRUG ADMINISTRATION ERROR [None]
  - HEART RATE INCREASED [None]
  - OVERDOSE [None]
